FAERS Safety Report 6938246-0 (Version None)
Quarter: 2010Q3

REPORT INFORMATION
  Report Type: 
  Country: None (occurrence: None)
  Receive Date: 20100824
  Receipt Date: 20100304
  Transmission Date: 20110219
  Serious: No
  Sender: FDA-Public Use
  Company Number: A0848339A

PATIENT
  Age: 47 Year
  Sex: Female
  Weight: 68.6 kg

DRUGS (2)
  1. MALARONE [Suspect]
     Indication: LYME DISEASE
     Dosage: 3TAB TWICE PER DAY
     Route: 048
     Dates: start: 20100212
  2. BIAXIN [Concomitant]

REACTIONS (3)
  - DYSGEUSIA [None]
  - FATIGUE [None]
  - OVERDOSE [None]
